FAERS Safety Report 8421397-1 (Version None)
Quarter: 2012Q2

REPORT INFORMATION
  Report Type: 
  Country: None (occurrence: None)
  Receive Date: 20120608
  Receipt Date: 20120529
  Transmission Date: 20120825
  Serious: Yes (Other)
  Sender: FDA-Public Use
  Company Number: US-JNJFOC-20120600513

PATIENT
  Sex: Male
  Weight: 88.45 kg

DRUGS (4)
  1. REMICADE [Suspect]
     Indication: COLITIS ULCERATIVE
     Route: 042
     Dates: start: 20120528
  2. REMICADE [Suspect]
     Route: 042
     Dates: start: 20080101
  3. UNSPECIFED MEDICATIONS [Concomitant]
     Indication: COLITIS ULCERATIVE
     Route: 065
  4. UNSPECIFIED ASTHMA INHALER [Concomitant]
     Indication: ASTHMA
     Route: 055

REACTIONS (5)
  - GASTROINTESTINAL PAIN [None]
  - INAPPROPRIATE SCHEDULE OF DRUG ADMINISTRATION [None]
  - DISTURBANCE IN ATTENTION [None]
  - VEIN DISORDER [None]
  - INFUSION RELATED REACTION [None]
